FAERS Safety Report 15043515 (Version 1)
Quarter: 2018Q2

REPORT INFORMATION
  Report Type: Spontaneous
  Country: US (occurrence: US)
  Receive Date: 20180621
  Receipt Date: 20180621
  Transmission Date: 20180711
  Serious: Yes (Other)
  Sender: FDA-Public Use
  Company Number: US-LUPIN (EUROPE) LIMITED-2018-04457

PATIENT
  Age: 72 Year
  Sex: Female
  Weight: 73.47 kg

DRUGS (4)
  1. LISINOPRIL TABLETS USP, 20MG [Suspect]
     Active Substance: LISINOPRIL
     Dosage: QD (LARGER TABLETS)
     Route: 048
     Dates: start: 2018
  2. LISINOPRIL TABLETS USP, 20MG [Suspect]
     Active Substance: LISINOPRIL
     Indication: HYPERTENSION
     Dosage: QD (LARGER TABLETS)
     Route: 048
     Dates: start: 20161116
  3. LOSARTAN POTASSIUM TABLET USP 100 MG [Suspect]
     Active Substance: LOSARTAN POTASSIUM
     Indication: HYPERTENSION
     Dosage: QD
     Route: 048
     Dates: start: 201801, end: 20180524
  4. LISINOPRIL TABLETS USP, 20MG [Suspect]
     Active Substance: LISINOPRIL
     Dosage: QD (SMALLER TABLETS)
     Route: 048
     Dates: start: 20170517, end: 201801

REACTIONS (3)
  - Anxiety [Recovering/Resolving]
  - Blood pressure increased [Recovered/Resolved]
  - Drug ineffective [Recovered/Resolved]

NARRATIVE: CASE EVENT DATE: 201801
